FAERS Safety Report 16918909 (Version 1)
Quarter: 2019Q4

REPORT INFORMATION
  Report Type: Spontaneous
  Country: GB (occurrence: GB)
  Receive Date: 20191015
  Receipt Date: 20191015
  Transmission Date: 20200122
  Serious: Yes (Other)
  Sender: FDA-Public Use
  Company Number: GB-TEVA-2019-GB-1120791

PATIENT
  Age: 17 Year
  Sex: Female
  Weight: 62 kg

DRUGS (3)
  1. CLENIL MODULITE [Concomitant]
     Active Substance: BECLOMETHASONE DIPROPIONATE
     Dosage: 4 DF
     Route: 055
     Dates: start: 20180704
  2. RANITIDINE. [Suspect]
     Active Substance: RANITIDINE
     Dosage: 150 MG
     Dates: start: 20190904
  3. SALBUTAMOL [Concomitant]
     Active Substance: ALBUTEROL
     Dosage: INHALE ONE OR TWO DOSES WHEN REQUIRED TO RELIEV...
     Route: 055
     Dates: start: 20180704

REACTIONS (3)
  - Paraesthesia [Recovered/Resolved]
  - Periorbital swelling [Recovered/Resolved]
  - Swelling face [Recovering/Resolving]

NARRATIVE: CASE EVENT DATE: 20190904
